FAERS Safety Report 6274104-5 (Version None)
Quarter: 2009Q3

REPORT INFORMATION
  Report Type: 
  Country: None (occurrence: None)
  Receive Date: 20090720
  Receipt Date: 20090708
  Transmission Date: 20100115
  Serious: Yes (Other)
  Sender: FDA-Public Use
  Company Number: PHHY2009DE28136

PATIENT
  Sex: Female
  Weight: 69 kg

DRUGS (4)
  1. FEMARA [Suspect]
     Indication: BREAST CANCER
     Dosage: 2.5 MG DAILY
     Route: 048
     Dates: start: 20070103
  2. CALCIUM VERLA [Concomitant]
     Dosage: UNK
     Dates: start: 20080401
  3. FOLIC ACID [Concomitant]
     Dosage: UNK
     Dates: start: 20071001
  4. RADIOTHERAPY [Concomitant]
     Dosage: UNK
     Dates: start: 20070201, end: 20070323

REACTIONS (11)
  - BLOOD PRESSURE INCREASED [None]
  - CONJUNCTIVITIS [None]
  - DRY SKIN [None]
  - FALL [None]
  - HEADACHE [None]
  - HOT FLUSH [None]
  - MUCOSAL DRYNESS [None]
  - MUSCULOSKELETAL PAIN [None]
  - PELVIC PAIN [None]
  - VISUAL ACUITY REDUCED [None]
  - WRIST FRACTURE [None]
